FAERS Safety Report 4770724-5 (Version None)
Quarter: 2005Q3

REPORT INFORMATION
  Report Type: 
  Country: None (occurrence: None)
  Receive Date: 20050914
  Receipt Date: 20050914
  Transmission Date: 20060218
  Serious: Yes (Death)
  Sender: FDA-Public Use
  Company Number: None

PATIENT
  Age: 37 Year
  Sex: Female
  Weight: 90.7194 kg

DRUGS (3)
  1. ZOLOFT [Suspect]
     Indication: DEPRESSION
     Dosage: 1 DAY PO
     Route: 048
     Dates: start: 20050501, end: 20050810
  2. ZOLOFT [Suspect]
     Indication: PREMENSTRUAL SYNDROME
     Dosage: 1 DAY PO
     Route: 048
     Dates: start: 20050501, end: 20050810
  3. LEXAPRO [Suspect]
     Indication: DEPRESSION
     Dosage: 1 DAY
     Dates: start: 20050715, end: 20050810

REACTIONS (3)
  - COMPLETED SUICIDE [None]
  - CONFUSIONAL STATE [None]
  - INTENTIONAL MISUSE [None]
